FAERS Safety Report 8937127 (Version 1)
Quarter: 2012Q4

REPORT INFORMATION
  Report Type: Spontaneous
  Country: US (occurrence: None)
  Receive Date: 20121128
  Receipt Date: 20121128
  Transmission Date: 20130627
  Serious: Yes (Other)
  Sender: FDA-Public Use
  Company Number: None

PATIENT
  Sex: Male
  Weight: 91.9 kg

DRUGS (2)
  1. INCIVEK [Suspect]
     Indication: HEPATITIS C
     Route: 048
     Dates: start: 20121123, end: 20121126
  2. PEGASYS [Suspect]
     Route: 058

REACTIONS (3)
  - Rash generalised [None]
  - Depression suicidal [None]
  - Chest pain [None]
